FAERS Safety Report 5678150-1 (Version None)
Quarter: 2008Q1

REPORT INFORMATION
  Report Type: 
  Country: None (occurrence: None)
  Receive Date: 20080319
  Receipt Date: 20080303
  Transmission Date: 20080703
  Serious: Yes (Hospitalization)
  Sender: FDA-Public Use
  Company Number: DSA_31577_2008

PATIENT
  Sex: Female

DRUGS (4)
  1. LORAZEPAM [Suspect]
     Dosage: 12 MG 1X ORAL
     Route: 048
     Dates: start: 20080301, end: 20080301
  2. DIAZEPAM [Suspect]
     Dosage: 20 MG 1X ORAL
     Route: 048
     Dates: start: 20080301, end: 20080301
  3. CLONAZEPAM [Suspect]
     Dosage: 2 MG 1X ORAL
     Route: 048
     Dates: start: 20080301, end: 20080301
  4. ZOPICLONE (ZOPICLONE) 7.5 MG [Suspect]
     Dosage: 37.5 MG 1X ORAL
     Route: 048
     Dates: start: 20080301, end: 20080301

REACTIONS (7)
  - CONFUSIONAL STATE [None]
  - COORDINATION ABNORMAL [None]
  - DEPRESSED LEVEL OF CONSCIOUSNESS [None]
  - DYSARTHRIA [None]
  - FATIGUE [None]
  - INTENTIONAL OVERDOSE [None]
  - SUICIDE ATTEMPT [None]
